FAERS Safety Report 11654933 (Version 1)
Quarter: 2015Q4

REPORT INFORMATION
  Report Type: Spontaneous
  Country: CN (occurrence: CN)
  Receive Date: 20151023
  Receipt Date: 20151023
  Transmission Date: 20160304
  Serious: Yes (Other)
  Sender: FDA-Public Use
  Company Number: CN-PFIZER INC-2015354270

PATIENT
  Age: 78 Year
  Sex: Male

DRUGS (2)
  1. CORDARONE [Suspect]
     Active Substance: AMIODARONE HYDROCHLORIDE
     Indication: CARDIAC FAILURE
     Dosage: 0.2 G, 3X/DAY
     Route: 048
     Dates: start: 20150520, end: 20150525
  2. MEXILETINE [Concomitant]
     Active Substance: MEXILETINE
     Dosage: UNK

REACTIONS (2)
  - Rash [Recovered/Resolved]
  - Henoch-Schonlein purpura [Unknown]

NARRATIVE: CASE EVENT DATE: 20150521
